FAERS Safety Report 4362559-2 (Version None)
Quarter: 2004Q2

REPORT INFORMATION
  Report Type: 
  Country: None (occurrence: None)
  Receive Date: 20040517
  Receipt Date: 20040204
  Transmission Date: 20050107
  Serious: Yes (Other)
  Sender: FDA-Public Use
  Company Number: SO4-USA-00579-01

PATIENT
  Age: 72 Year
  Sex: Female

DRUGS (3)
  1. NAMENDA [Suspect]
     Indication: DEMENTIA ALZHEIMER'S TYPE
     Dosage: 5 MG QD PO
     Route: 048
     Dates: start: 20040121
  2. DILAUDID [Concomitant]
  3. NAPROSYN [Concomitant]

REACTIONS (1)
  - URINARY RETENTION [None]
